FAERS Safety Report 17623340 (Version 1)
Quarter: 2020Q2

REPORT INFORMATION
  Report Type: Spontaneous
  Country: US (occurrence: US)
  Receive Date: 20200403
  Receipt Date: 20200403
  Transmission Date: 20200713
  Serious: Yes (Other)
  Sender: FDA-Public Use
  Company Number: US-PFIZER INC-2019347810

PATIENT
  Age: 76 Year
  Sex: Female

DRUGS (4)
  1. PREMARIN [Suspect]
     Active Substance: ESTROGENS, CONJUGATED
     Dosage: SHE STARTED USING LESS SO SHE WOULDN^T RUN OUT/ ONLY USING A SMALL AMOUNT EVERY NIGHT
  2. PREMARIN [Suspect]
     Active Substance: ESTROGENS, CONJUGATED
     Indication: URINARY INCONTINENCE
     Dosage: 1 G, UNK (1 GM 3 X A WEEK)
  3. PREMARIN [Suspect]
     Active Substance: ESTROGENS, CONJUGATED
     Indication: CYSTITIS
     Dosage: 0.625 MG, THREE TIMES A WEEK
     Route: 067
  4. LYRICA [Concomitant]
     Active Substance: PREGABALIN
     Dosage: 75 MG, 2X/DAY(TWO AT BEDTIME.)

REACTIONS (7)
  - Off label use [Unknown]
  - Drug effective for unapproved indication [Unknown]
  - Dementia [Unknown]
  - Memory impairment [Unknown]
  - Confusional state [Unknown]
  - Intentional product use issue [Unknown]
  - Joint dislocation [Recovering/Resolving]
